FAERS Safety Report 4500112-8 (Version None)
Quarter: 2004Q4

REPORT INFORMATION
  Report Type: 
  Country: None (occurrence: None)
  Receive Date: 20041112
  Receipt Date: 20041103
  Transmission Date: 20050328
  Serious: Yes (Life-Threatening, Other)
  Sender: FDA-Public Use
  Company Number: GB-GLAXOSMITHKLINE-B0350445A

PATIENT
  Age: 45 Year
  Sex: Male
  Weight: 69 kg

DRUGS (2)
  1. PAROXETINE [Suspect]
     Indication: ANXIETY
     Dosage: 20MG PER DAY
     Route: 048
     Dates: start: 20040923, end: 20041013
  2. DIAZEPAM [Concomitant]
     Indication: ANXIETY
     Dosage: 4MG PER DAY
     Route: 048
     Dates: start: 20040601

REACTIONS (4)
  - CONDITION AGGRAVATED [None]
  - INTENTIONAL SELF-INJURY [None]
  - SKIN LACERATION [None]
  - SUICIDAL IDEATION [None]
